FAERS Safety Report 17182018 (Version 3)
Quarter: 2020Q1

REPORT INFORMATION
  Report Type: Spontaneous
  Country: BE (occurrence: BE)
  Receive Date: 20191220
  Receipt Date: 20200225
  Transmission Date: 20200409
  Serious: Yes (Other)
  Sender: FDA-Public Use
  Company Number: BE-BRISTOL-MYERS SQUIBB COMPANY-BMS-2019-119565

PATIENT
  Age: 68 Year
  Sex: Female

DRUGS (1)
  1. NIVOLUMAB [Suspect]
     Active Substance: NIVOLUMAB
     Indication: COLORECTAL CANCER
     Dosage: UNAVAILABLE
     Route: 065

REACTIONS (4)
  - Intentional product use issue [Unknown]
  - Malignant neoplasm progression [Unknown]
  - Squamous cell carcinoma [Unknown]
  - Lichenoid keratosis [Unknown]
